FAERS Safety Report 8716371 (Version 2)
Quarter: 2013Q4

REPORT INFORMATION
  Report Type: Report from Study
  Country: US (occurrence: US)
  Receive Date: 20120810
  Receipt Date: 20131101
  Transmission Date: 20140711
  Serious: No
  Sender: FDA-Public Use
  Company Number: US-009507513-1207USA007090

PATIENT
  Age: 51 Year
  Sex: Male

DRUGS (5)
  1. VICTRELIS [Suspect]
     Dosage: 4 DF (800 MG) TID,EVERY 7-9 HOURS
     Route: 048
  2. PEGASYS [Suspect]
  3. RIBAVIRIN [Suspect]
     Dosage: 400 MG, UNK
  4. VITAMINS (UNSPECIFIED) [Concomitant]
  5. OMEGA-3 MARINE TRIGLYCERIDES [Concomitant]

REACTIONS (5)
  - White blood cell count decreased [Unknown]
  - Diarrhoea [Unknown]
  - Platelet count decreased [Unknown]
  - Pruritus [Unknown]
  - Dysgeusia [Unknown]
